FAERS Safety Report 8950468 (Version 1)
Quarter: 2012Q4

REPORT INFORMATION
  Report Type: 
  Country: US (occurrence: US)
  Receive Date: 20121206
  Receipt Date: 20121206
  Transmission Date: 20130627
  Serious: No
  Sender: FDA-Public Use
  Company Number: US-TEVA-370502USA

PATIENT
  Sex: Female

DRUGS (3)
  1. NUVIGIL [Suspect]
  2. PROVIGIL [Suspect]
  3. ZYPREXA [Concomitant]

REACTIONS (2)
  - Social avoidant behaviour [Unknown]
  - Mental status changes [Unknown]
